FAERS Safety Report 8086528-4 (Version None)
Quarter: 2012Q1

REPORT INFORMATION
  Report Type: 
  Country: None (occurrence: None)
  Receive Date: 20120128
  Receipt Date: 20110405
  Transmission Date: 20120608
  Serious: Yes (Hospitalization)
  Sender: FDA-Public Use
  Company Number: US-ABBOTT-11P-163-0716961-00

PATIENT
  Sex: Female
  Weight: 49.032 kg

DRUGS (3)
  1. HUMIRA [Suspect]
     Indication: CROHN'S DISEASE
     Dates: start: 20090501
  2. PRILOSEC [Concomitant]
     Indication: GASTROOESOPHAGEAL REFLUX DISEASE
     Dates: start: 20110301
  3. PAXIL [Concomitant]
     Indication: DEPRESSION

REACTIONS (3)
  - ABDOMINAL PAIN UPPER [None]
  - CROHN'S DISEASE [None]
  - MENSTRUATION IRREGULAR [None]
